FAERS Safety Report 24726071 (Version 1)
Quarter: 2024Q4

REPORT INFORMATION
  Report Type: Spontaneous
  Country: US (occurrence: US)
  Receive Date: 20241212
  Receipt Date: 20241212
  Transmission Date: 20250115
  Serious: Yes (Other)
  Sender: HIKMA
  Company Number: US-HIKMA PHARMACEUTICALS USA INC.-US-H14001-24-11426

PATIENT
  Sex: Female

DRUGS (1)
  1. FLUTICASONE PROPIONATE AND SALMETEROL [Suspect]
     Active Substance: FLUTICASONE PROPIONATE\SALMETEROL XINAFOATE
     Indication: Emphysema
     Dosage: UNK, BID
     Route: 065

REACTIONS (4)
  - Loss of consciousness [Unknown]
  - Dyspnoea [Unknown]
  - Drug ineffective [Unknown]
  - Accidental underdose [Unknown]
